FAERS Safety Report 11423127 (Version 1)
Quarter: 2015Q3

REPORT INFORMATION
  Report Type: Spontaneous
  Country: US (occurrence: None)
  Receive Date: 20150826
  Receipt Date: 20150826
  Transmission Date: 20151125
  Serious: Yes (Other)
  Sender: FDA-Public Use
  Company Number: None

PATIENT
  Age: 38 Year
  Sex: Female
  Weight: 73.03 kg

DRUGS (4)
  1. VITAMIN B12 [Concomitant]
     Active Substance: CYANOCOBALAMIN
  2. VITAMIN D3 [Concomitant]
     Active Substance: CHOLECALCIFEROL
  3. SYNTHROID [Concomitant]
     Active Substance: LEVOTHYROXINE SODIUM
  4. COPAXONE [Suspect]
     Active Substance: GLATIRAMER ACETATE
     Indication: MULTIPLE SCLEROSIS
     Dosage: 40 MG 3 TIMES PER WEEK GIVEN INTO/UNDER THE SKIN
     Route: 058
     Dates: start: 20150814, end: 20150824

REACTIONS (6)
  - Tremor [None]
  - Dysstasia [None]
  - Pain [None]
  - Muscular weakness [None]
  - Gait disturbance [None]
  - Chills [None]

NARRATIVE: CASE EVENT DATE: 20150821
